FAERS Safety Report 20707539 (Version 1)
Quarter: 2022Q2

REPORT INFORMATION
  Report Type: Spontaneous
  Country: RO (occurrence: None)
  Receive Date: 20220413
  Receipt Date: 20220413
  Transmission Date: 20220720
  Serious: Yes (Other)
  Sender: FDA-Public Use
  Company Number: RO-ROCHE-3068649

PATIENT
  Age: 66 Year
  Sex: Male

DRUGS (2)
  1. OBINUTUZUMAB [Suspect]
     Active Substance: OBINUTUZUMAB
     Indication: Chronic lymphocytic leukaemia
     Route: 042
     Dates: start: 20220118
  2. VENETOCLAX [Suspect]
     Active Substance: VENETOCLAX
     Indication: Chronic lymphocytic leukaemia
     Route: 065

REACTIONS (7)
  - Hyperaemia [Unknown]
  - Dyspnoea [Unknown]
  - Vomiting [Unknown]
  - Syncope [Unknown]
  - Lymphadenopathy [Unknown]
  - Haematotoxicity [Unknown]
  - Neutropenia [Unknown]
